FAERS Safety Report 9518369 (Version 1)
Quarter: 2013Q1

REPORT INFORMATION
  Report Type: Spontaneous
  Country: US (occurrence: None)
  Receive Date: 20130305
  Receipt Date: 20130305
  Transmission Date: 20140127
  Serious: Yes (Hospitalization)
  Sender: FDA-Public Use
  Company Number: 163-21880-12081076

PATIENT
  Age: 93 Year
  Sex: Female

DRUGS (2)
  1. REVLIMID [Suspect]
     Indication: B-CELL LYMPHOMA
     Dosage: 10 MG, AT BEDTIME, PO
     Route: 048
     Dates: start: 20120412
  2. BLOOD PRESSURE MEDICATION (OTHER ANTIHYPERTENSIVES) (UNKNOWN) [Concomitant]

REACTIONS (3)
  - Hypotension [None]
  - Transient ischaemic attack [None]
  - Pain in extremity [None]
